FAERS Safety Report 6594761-3 (Version None)
Quarter: 2010Q1

REPORT INFORMATION
  Report Type: 
  Country: None (occurrence: None)
  Receive Date: 20100222
  Receipt Date: 20100215
  Transmission Date: 20100710
  Serious: Yes (Death)
  Sender: FDA-Public Use
  Company Number: JP-ASTRAZENECA-2010SE07208

PATIENT
  Age: 38 Year
  Sex: Male

DRUGS (7)
  1. SEROQUEL [Suspect]
     Dosage: 5000 MG ONCE
     Route: 048
  2. VEGETAMIN B [Suspect]
     Route: 048
  3. SERENACE [Suspect]
     Route: 048
  4. ROHYPNOL [Suspect]
     Route: 048
  5. HALCION [Suspect]
     Route: 048
  6. ABILIFY [Suspect]
     Route: 048
  7. LEXOTAN [Suspect]
     Route: 048

REACTIONS (2)
  - DEATH [None]
  - OVERDOSE [None]
